FAERS Safety Report 6222073-6 (Version None)
Quarter: 2009Q2

REPORT INFORMATION
  Report Type: 
  Country: None (occurrence: None)
  Receive Date: 20090608
  Receipt Date: 20090608
  Transmission Date: 20091009
  Serious: Yes (Other)
  Sender: FDA-Public Use
  Company Number: None

PATIENT
  Age: 50 Year
  Sex: Female
  Weight: 131.5431 kg

DRUGS (2)
  1. CYMBALTA [Suspect]
     Indication: DEPRESSION
     Dosage: ONE CAPSULE A DAY ONCE A DAY PO
     Route: 048
     Dates: start: 20080101, end: 20090605
  2. CYMBALTA [Suspect]
     Indication: NEUROPATHY PERIPHERAL
     Dosage: ONE CAPSULE A DAY ONCE A DAY PO
     Route: 048
     Dates: start: 20080101, end: 20090605

REACTIONS (4)
  - HEADACHE [None]
  - NIGHTMARE [None]
  - TREMOR [None]
  - WITHDRAWAL SYNDROME [None]
